FAERS Safety Report 16959872 (Version 4)
Quarter: 2020Q1

REPORT INFORMATION
  Report Type: Report from Study
  Country: US (occurrence: US)
  Receive Date: 20191025
  Receipt Date: 20200323
  Transmission Date: 20200409
  Serious: Yes (Hospitalization)
  Sender: FDA-Public Use
  Company Number: US-ROCHE-2387183

PATIENT
  Age: 77 Year
  Sex: Male

DRUGS (14)
  1. OMEPRAZOLE. [Concomitant]
     Active Substance: OMEPRAZOLE
     Indication: GASTROOESOPHAGEAL REFLUX DISEASE
     Route: 048
     Dates: start: 20190601
  2. RITUXIMAB. [Concomitant]
     Active Substance: RITUXIMAB
     Route: 065
  3. LENALIDOMIDE [Suspect]
     Active Substance: LENALIDOMIDE
     Indication: B-CELL LYMPHOMA
     Route: 048
     Dates: start: 20190621, end: 20190815
  4. PREDNISONE. [Concomitant]
     Active Substance: PREDNISONE
  5. IBRUTINIB [Suspect]
     Active Substance: IBRUTINIB
     Indication: B-CELL LYMPHOMA
     Route: 048
     Dates: start: 20190621, end: 20190815
  6. RANITIDINE. [Concomitant]
     Active Substance: RANITIDINE
     Indication: GASTROOESOPHAGEAL REFLUX DISEASE
     Route: 048
     Dates: start: 20190621
  7. CYCLOPHOSPHAMIDE. [Concomitant]
     Active Substance: CYCLOPHOSPHAMIDE
  8. METHOTREXATE. [Concomitant]
     Active Substance: METHOTREXATE
  9. VENETOCLAX. [Suspect]
     Active Substance: VENETOCLAX
     Indication: B-CELL LYMPHOMA
     Dosage: LAST DOSE: 15/OCT/2019
     Route: 048
     Dates: start: 20190622
  10. OBINUTUZUMAB. [Suspect]
     Active Substance: OBINUTUZUMAB
     Indication: B-CELL LYMPHOMA
     Dosage: LAST DOSE: 05/OCT/2019
     Route: 042
     Dates: start: 20190621
  11. PREDNISONE. [Suspect]
     Active Substance: PREDNISONE
     Indication: B-CELL LYMPHOMA
     Route: 048
     Dates: start: 20190621, end: 20190815
  12. ETOPOSIDE PHOSPHATE [Concomitant]
     Active Substance: ETOPOSIDE PHOSPHATE
  13. ONCOVIN [Concomitant]
     Active Substance: VINCRISTINE SULFATE
  14. HYDROXYDAUNORUBICIN [Concomitant]
     Active Substance: DOXORUBICIN

REACTIONS (3)
  - Coronary artery disease [Recovered/Resolved]
  - Atrial fibrillation [Recovered/Resolved]
  - Non-cardiac chest pain [Recovered/Resolved]

NARRATIVE: CASE EVENT DATE: 20190815
